FAERS Safety Report 4469441-0 (Version None)
Quarter: 2004Q4

REPORT INFORMATION
  Report Type: 
  Country: None (occurrence: None)
  Receive Date: 20041005
  Receipt Date: 20040922
  Transmission Date: 20050328
  Serious: Yes (Hospitalization)
  Sender: FDA-Public Use
  Company Number: 2004022897

PATIENT
  Age: 47 Year
  Sex: Female
  Weight: 63 kg

DRUGS (2)
  1. ZELDOX (CAPSULES) (ZIPRASIDONE) [Suspect]
     Indication: SCHIZOPHRENIA
     Dosage: 80 MG (2 IN 1 D), ORAL
     Route: 048
     Dates: start: 20040310, end: 20040325
  2. PROMETHAZINE [Suspect]
     Indication: ILL-DEFINED DISORDER

REACTIONS (1)
  - HEPATIC ENZYME INCREASED [None]
